FAERS Safety Report 9131878 (Version 1)
Quarter: 2013Q1

REPORT INFORMATION
  Report Type: Report from Study
  Country: DE (occurrence: DE)
  Receive Date: 20130301
  Receipt Date: 20130301
  Transmission Date: 20140127
  Serious: Yes (Hospitalization)
  Sender: FDA-Public Use
  Company Number: DE-ABBOTT-13P-062-1055567-00

PATIENT
  Age: 22 None
  Sex: Female
  Weight: 62 kg

DRUGS (9)
  1. HUMIRA [Suspect]
     Indication: CROHN^S DISEASE
     Route: 058
     Dates: start: 2010, end: 2012
  2. HUMIRA [Suspect]
     Route: 058
     Dates: start: 201211, end: 201301
  3. PANTOPRAZOLE (PANTOZOL) [Concomitant]
     Indication: PRODUCT USED FOR UNKNOWN INDICATION
     Dosage: 1-0-0-0
  4. METAMIZOLE (NOVAMIN) [Concomitant]
     Indication: PRODUCT USED FOR UNKNOWN INDICATION
     Dosage: FREQUENCY 1-0-1-0
  5. MESALAZINE [Concomitant]
     Indication: PRODUCT USED FOR UNKNOWN INDICATION
     Dosage: FREQUENCY: 1-1-1-0
  6. SIMETICONE [Concomitant]
     Indication: PRODUCT USED FOR UNKNOWN INDICATION
     Dosage: FREQUENCY: 0-0-1-0
  7. TARGIN [Concomitant]
     Indication: PRODUCT USED FOR UNKNOWN INDICATION
     Dosage: STRENGTH: 10/5MG, DAILY DOSE: 20/10MG; FREQUENCY: 1-0-0-1
  8. CALCIUM CARBONATE [Concomitant]
     Indication: PRODUCT USED FOR UNKNOWN INDICATION
     Dosage: FREQUENCY: 1-0-1-0
  9. DECORTIN [Concomitant]
     Indication: PRODUCT USED FOR UNKNOWN INDICATION
     Dosage: FREQUENCY: 1-0-0-0
     Dates: start: 2013, end: 20130121

REACTIONS (7)
  - Decreased appetite [Recovering/Resolving]
  - Crohn^s disease [Recovered/Resolved]
  - Pyelonephritis [Unknown]
  - Pyrexia [Recovering/Resolving]
  - Abdominal pain lower [Recovering/Resolving]
  - Diarrhoea [Recovering/Resolving]
  - Abdominal pain upper [Recovering/Resolving]
